FAERS Safety Report 13419726 (Version 4)
Quarter: 2017Q3

REPORT INFORMATION
  Report Type: Spontaneous
  Country: US (occurrence: US)
  Receive Date: 20170407
  Receipt Date: 20170807
  Transmission Date: 20171127
  Serious: Yes (Hospitalization)
  Sender: FDA-Public Use
  Company Number: US-PFIZER INC-2017148907

PATIENT
  Age: 74 Year
  Sex: Male
  Weight: 66 kg

DRUGS (2)
  1. SODIUM DICHLOROACETATE. [Concomitant]
     Active Substance: SODIUM DICHLOROACETATE
     Indication: NEOPLASM MALIGNANT
     Dosage: 666 MG, 2X/DAY
     Dates: start: 201703
  2. EMCYT [Suspect]
     Active Substance: ESTRAMUSTINE PHOSPHATE SODIUM
     Indication: PROSTATE CANCER
     Dosage: 280 MG, 2X/WEEK (2 CAPSULES TWICE A WEEK FOR 4 WEEKS)
     Route: 048
     Dates: start: 20170328, end: 20170428

REACTIONS (11)
  - Feeling abnormal [Not Recovered/Not Resolved]
  - Vertigo [Unknown]
  - Amnesia [Unknown]
  - Fatigue [Recovered/Resolved]
  - Diarrhoea [Recovered/Resolved]
  - Prostatic specific antigen decreased [Recovered/Resolved]
  - Anxiety [Unknown]
  - Weight decreased [Unknown]
  - Nausea [Recovered/Resolved]
  - Breast swelling [Recovered/Resolved]
  - Vomiting [Recovered/Resolved]

NARRATIVE: CASE EVENT DATE: 20170402
